FAERS Safety Report 9278315 (Version 4)
Quarter: 2013Q3

REPORT INFORMATION
  Report Type: Spontaneous
  Country: JP (occurrence: JP)
  Receive Date: 20130508
  Receipt Date: 20130723
  Transmission Date: 20140515
  Serious: Yes (Hospitalization, Other)
  Sender: FDA-Public Use
  Company Number: PHHY2013JP043455

PATIENT
  Age: 81 Year
  Sex: Male
  Weight: 73 kg

DRUGS (2)
  1. VOLTAREN [Suspect]
     Indication: HYPERTHERMIA
     Dosage: 50 MG, QD
     Route: 054
     Dates: start: 20070330, end: 20070404
  2. WARFARIN [Interacting]
     Indication: PERIPHERAL ARTERIAL OCCLUSIVE DISEASE
     Dosage: 1.5 MG, QD
     Route: 048
     Dates: start: 20050128, end: 20070404

REACTIONS (4)
  - International normalised ratio increased [Recovered/Resolved]
  - Gastric ulcer haemorrhage [Recovered/Resolved]
  - Haematemesis [Recovered/Resolved]
  - Drug interaction [Recovering/Resolving]
